FAERS Safety Report 6003208-7 (Version None)
Quarter: 2008Q4

REPORT INFORMATION
  Report Type: 
  Country: None (occurrence: None)
  Receive Date: 20081216
  Receipt Date: 20081212
  Transmission Date: 20090506
  Serious: Yes (Other)
  Sender: FDA-Public Use
  Company Number: GB-ASTRAZENECA-2008GB02331

PATIENT
  Age: 49 Year
  Sex: Female

DRUGS (4)
  1. SEROQUEL [Suspect]
     Indication: SCHIZOAFFECTIVE DISORDER
     Dosage: 200MG IN THE MORNING AND 300MG AT NIGHT
     Route: 048
     Dates: start: 20080901, end: 20081211
  2. SEROQUEL [Suspect]
     Dosage: 200MG IN THE MORNING AND 400MG AT NIGHT
     Route: 048
     Dates: start: 20081212
  3. SODIUM VALPROATE MR [Concomitant]
     Indication: SCHIZOAFFECTIVE DISORDER
     Dates: start: 20080901
  4. ZOPICLONE [Concomitant]

REACTIONS (1)
  - NEUTROPHIL COUNT DECREASED [None]
